FAERS Safety Report 12941996 (Version 3)
Quarter: 2017Q1

REPORT INFORMATION
  Report Type: Report from Study
  Country: CH (occurrence: CH)
  Receive Date: 20161114
  Receipt Date: 20170120
  Transmission Date: 20170428
  Serious: Yes (Death, Life-Threatening, Hospitalization, Other)
  Sender: FDA-Public Use
  Company Number: CH-ASTRAZENECA-2016SF13071

PATIENT
  Age: 89 Year
  Sex: Male

DRUGS (13)
  1. AMLODIPIN [Concomitant]
     Active Substance: AMLODIPINE BESYLATE
     Route: 065
  2. TICAGRELOR [Suspect]
     Active Substance: TICAGRELOR
     Indication: THROMBOSIS PROPHYLAXIS
     Route: 048
     Dates: start: 20140717
  3. ACETYLSALICYLIC ACID [Suspect]
     Active Substance: ASPIRIN
     Indication: THROMBOSIS PROPHYLAXIS
     Dosage: NON AZ PRODUCT
     Route: 048
     Dates: start: 20140717, end: 20140816
  4. ENALAPRIL [Concomitant]
     Active Substance: ENALAPRIL
     Route: 065
  5. ESCITALOPRAM [Concomitant]
     Active Substance: ESCITALOPRAM OXALATE
     Route: 065
  6. ACETYLSALICYLIC ACID [Suspect]
     Active Substance: ASPIRIN
     Indication: ACUTE CORONARY SYNDROME
     Dosage: NON AZ PRODUCT
     Route: 048
     Dates: start: 20140717, end: 20140816
  7. VIDE3 [Concomitant]
     Route: 065
  8. TICAGRELOR [Suspect]
     Active Substance: TICAGRELOR
     Indication: ACUTE CORONARY SYNDROME
     Route: 048
     Dates: start: 20140717
  9. BELOC ZOK [Concomitant]
     Active Substance: METOPROLOL SUCCINATE
     Route: 065
  10. CRESTOR [Concomitant]
     Active Substance: ROSUVASTATIN CALCIUM
     Route: 065
  11. ZOLPIDEM [Concomitant]
     Active Substance: ZOLPIDEM\ZOLPIDEM TARTRATE
     Route: 065
  12. ROCALTROL [Concomitant]
     Active Substance: CALCITRIOL
     Route: 065
  13. TOREM [Concomitant]
     Active Substance: TORSEMIDE
     Route: 065

REACTIONS (4)
  - Subdural haematoma [Fatal]
  - Cardiac failure [Fatal]
  - Pleural effusion [Fatal]
  - Fall [Recovered/Resolved]

NARRATIVE: CASE EVENT DATE: 20160406
